FAERS Safety Report 6244097-5 (Version None)
Quarter: 2009Q2

REPORT INFORMATION
  Report Type: 
  Country: None (occurrence: None)
  Receive Date: 20090625
  Receipt Date: 20070801
  Transmission Date: 20091009
  Serious: Yes (Other)
  Sender: FDA-Public Use
  Company Number: US-ASTRAZENECA-2007UW12092

PATIENT
  Age: 19735 Day
  Sex: Female
  Weight: 119.3 kg

DRUGS (8)
  1. SEROQUEL [Suspect]
     Indication: DEPRESSION
     Dosage: 50-100 MG
     Route: 048
     Dates: start: 20020625
  2. SEROQUEL [Suspect]
     Route: 048
     Dates: start: 20020701, end: 20060517
  3. PREVACID [Concomitant]
     Route: 048
     Dates: start: 20040309
  4. LIPITOR [Concomitant]
     Dosage: 20-40 MG
     Route: 048
     Dates: start: 20040309
  5. PAXIL [Concomitant]
     Dosage: 20-60 MG
     Route: 048
     Dates: start: 20040312
  6. CLONAZEPAM [Concomitant]
     Route: 048
     Dates: start: 20040312
  7. TOPAMAX [Concomitant]
     Route: 048
     Dates: start: 20040312
  8. GLUCOPHAGE [Concomitant]
     Route: 048
     Dates: start: 20050627

REACTIONS (3)
  - DIABETES MELLITUS [None]
  - DIABETIC NEUROPATHY [None]
  - TYPE 2 DIABETES MELLITUS [None]
